FAERS Safety Report 6686912-7 (Version None)
Quarter: 2010Q2

REPORT INFORMATION
  Report Type: 
  Country: None (occurrence: None)
  Receive Date: 20100416
  Receipt Date: 20100416
  Transmission Date: 20101027
  Serious: Yes (Other)
  Sender: FDA-Public Use
  Company Number: None

PATIENT
  Age: 50 Year
  Sex: Male
  Weight: 108.8633 kg

DRUGS (1)
  1. AMLODIPINE BESYLATE [Suspect]
     Indication: HYPERTENSION
     Dosage: 5MG 10-2-09 - 11-6 ONCE DAY ORAL; 10MG 11-6 THRU 12-4 ONCE DAY ORAL
     Route: 048
     Dates: start: 20091002, end: 20091204

REACTIONS (7)
  - ARTHRALGIA [None]
  - ASTHENIA [None]
  - BACK PAIN [None]
  - CONDITION AGGRAVATED [None]
  - NEURITIS [None]
  - PARAESTHESIA [None]
  - SCIATICA [None]
